FAERS Safety Report 4730895-3 (Version None)
Quarter: 2005Q3

REPORT INFORMATION
  Report Type: 
  Country: None (occurrence: None)
  Receive Date: 20050728
  Receipt Date: 20050407
  Transmission Date: 20060218
  Serious: Yes (Other)
  Sender: FDA-Public Use
  Company Number: ZICO001187

PATIENT
  Age: 49 Year
  Sex: Female

DRUGS (4)
  1. PRIALT [Suspect]
     Indication: PAIN
     Dosage: 0.263 MCG/HR INTRATHECAL
     Route: 037
     Dates: start: 19990708, end: 20040914
  2. SOMA [Concomitant]
  3. NEURONTIN [Concomitant]
  4. ELAVIL [Concomitant]

REACTIONS (1)
  - PSYCHOTIC DISORDER [None]
